FAERS Safety Report 5474724-1 (Version None)
Quarter: 2007Q3

REPORT INFORMATION
  Report Type: 
  Country: None (occurrence: None)
  Receive Date: 20070928
  Receipt Date: 20070914
  Transmission Date: 20080115
  Serious: Yes (Hospitalization)
  Sender: FDA-Public Use
  Company Number: 161538ISR

PATIENT
  Age: 25 Year
  Sex: Male

DRUGS (4)
  1. CISPLATIN [Suspect]
     Indication: GERM CELL CANCER
     Dosage: 20 MG (2 CYCLE) INTRAVENOUS
     Route: 042
     Dates: start: 20070123, end: 20070221
  2. BLEOMYCIN [Suspect]
     Indication: GERM CELL CANCER
     Dosage: 30 MG (2 CYCLE) INTRAVENOUS
     Route: 042
     Dates: start: 20070123, end: 20070221
  3. ETOPOSIDE [Suspect]
     Indication: GERM CELL CANCER
     Dosage: 100 MG (2 CYCLE)
     Dates: start: 20070123, end: 20070221
  4. PACLITAXEL [Suspect]
     Indication: GERM CELL CANCER
     Dosage: 175 MG (2 CYCLE) INTRAVENOUS
     Route: 042
     Dates: start: 20070123, end: 20070211

REACTIONS (1)
  - DEEP VEIN THROMBOSIS [None]
